FAERS Safety Report 9518000 (Version 1)
Quarter: 2013Q3

REPORT INFORMATION
  Report Type: Spontaneous
  Country: CN (occurrence: None)
  Receive Date: 20130910
  Receipt Date: 20130910
  Transmission Date: 20140515
  Serious: Yes (Hospitalization)
  Sender: FDA-Public Use
  Company Number: VAL_02711_2013

PATIENT
  Age: 71 Year
  Sex: Male

DRUGS (2)
  1. BENAZEPRIL (BENAZEPRIL-BENAZEPRIL HYDROCHLORIDE) [Suspect]
     Indication: PRODUCT USED FOR UNKNOWN INDICATION
     Dosage: DF
  2. ALISKIREN [Suspect]
     Dosage: DF ORAL
     Route: 048
     Dates: start: 20090331, end: 20110815

REACTIONS (3)
  - Coronary artery disease [None]
  - Arrhythmia [None]
  - Hyperkalaemia [None]
